FAERS Safety Report 10411923 (Version 1)
Quarter: 2014Q3

REPORT INFORMATION
  Report Type: Spontaneous
  Country: US (occurrence: US)
  Receive Date: 20140827
  Receipt Date: 20140827
  Transmission Date: 20150326
  Serious: Yes (Death)
  Sender: FDA-Public Use
  Company Number: US-CELGENEUS-163-21880-14084328

PATIENT
  Age: 83 Year
  Sex: Female
  Weight: 69.01 kg

DRUGS (1)
  1. REVLIMID [Suspect]
     Active Substance: LENALIDOMIDE
     Indication: PLASMA CELL MYELOMA
     Dosage: 10 MILLIGRAM
     Route: 048
     Dates: start: 20140728, end: 20140811

REACTIONS (2)
  - Cardiac arrest [Fatal]
  - Thrombosis [Fatal]

NARRATIVE: CASE EVENT DATE: 201408
